FAERS Safety Report 18261677 (Version 1)
Quarter: 2020Q3

REPORT INFORMATION
  Report Type: Spontaneous
  Country: GB (occurrence: GB)
  Receive Date: 20200914
  Receipt Date: 20200914
  Transmission Date: 20201103
  Serious: Yes (Other)
  Sender: FDA-Public Use
  Company Number: GB-TEVA-2020-GB-1826444

PATIENT
  Age: 20 Year
  Sex: Female

DRUGS (2)
  1. CERELLE [Concomitant]
     Active Substance: DESOGESTREL
  2. AMOXICILLIN. [Suspect]
     Active Substance: AMOXICILLIN
     Indication: LOCALISED INFECTION
     Dosage: 4 DOSAGE FORMS
     Route: 048
     Dates: start: 20200710

REACTIONS (4)
  - Diarrhoea [Not Recovered/Not Resolved]
  - Gastrooesophageal reflux disease [Unknown]
  - Vomiting [Unknown]
  - Nausea [Not Recovered/Not Resolved]
